FAERS Safety Report 10268484 (Version 1)
Quarter: 2014Q2

REPORT INFORMATION
  Report Type: Spontaneous
  Country: NL (occurrence: NL)
  Receive Date: 20140630
  Receipt Date: 20140630
  Transmission Date: 20141212
  Serious: Yes (Hospitalization)
  Sender: FDA-Public Use
  Company Number: NL-NOVOPROD-413992

PATIENT
  Age: 56 Year
  Sex: Female
  Weight: 110 kg

DRUGS (2)
  1. VICTOZA [Suspect]
     Indication: OVERWEIGHT
     Dosage: UNK
     Route: 058
  2. METFORMINE [Concomitant]
     Dosage: 850 MG, TID
     Route: 048

REACTIONS (1)
  - Lung disorder [Not Recovered/Not Resolved]
